FAERS Safety Report 8620111-4 (Version None)
Quarter: 2012Q3

REPORT INFORMATION
  Report Type: 
  Country: None (occurrence: None)
  Receive Date: 20120816
  Receipt Date: 20120816
  Transmission Date: 20120928
  Serious: Yes (Other)
  Sender: FDA-Public Use
  Company Number: None

PATIENT
  Age: 75 Year
  Sex: Female
  Weight: 72.2 kg

DRUGS (10)
  1. PREDNISONE TAB [Concomitant]
  2. BENAZEPRIL HYDROCHLORIDE [Concomitant]
  3. ALTEPLASE 100 MG, GENETECH [Suspect]
     Indication: CEREBROVASCULAR ACCIDENT
     Dosage: 5.67 MG, ONCE, IV BOLUS
     Route: 040
     Dates: start: 20120811, end: 20120811
  4. ASPIRIN [Concomitant]
  5. ATORVASTATIN [Concomitant]
  6. DORZOLAMIDE [Concomitant]
  7. PROPAFENONE HCL [Concomitant]
  8. ACE INHIBITOR - BIMATOPROST [Concomitant]
  9. CALCIUM CARBONATE [Concomitant]
  10. METFORMIN HCL [Concomitant]

REACTIONS (1)
  - SWOLLEN TONGUE [None]
